FAERS Safety Report 10886399 (Version 1)
Quarter: 2015Q1

REPORT INFORMATION
  Report Type: Spontaneous
  Country: US (occurrence: US)
  Receive Date: 20150304
  Receipt Date: 20150304
  Transmission Date: 20150721
  Serious: No
  Sender: FDA-Public Use
  Company Number: US-009507513-1502USA008063

PATIENT
  Age: 39 Year
  Sex: Female
  Weight: 82.54 kg

DRUGS (1)
  1. NUVARING [Suspect]
     Active Substance: ETHINYL ESTRADIOL\ETONOGESTREL
     Dosage: (1 RING 3 WEEKS 1 WEEK OUT) BUT SHE WAS TO USE FOR 4 WEEKS
     Route: 067
     Dates: start: 2007

REACTIONS (3)
  - Vaginal haemorrhage [Unknown]
  - Vaginal discharge [Unknown]
  - Incorrect drug administration duration [Unknown]

NARRATIVE: CASE EVENT DATE: 201410
